FAERS Safety Report 7114748-1 (Version None)
Quarter: 2010Q4

REPORT INFORMATION
  Report Type: 
  Country: None (occurrence: None)
  Receive Date: 20101122
  Receipt Date: 20101110
  Transmission Date: 20110411
  Serious: No
  Sender: FDA-Public Use
  Company Number: US-BIOGENIDEC-2010BI029413

PATIENT
  Sex: Male

DRUGS (1)
  1. TYSABRI [Suspect]
     Indication: MULTIPLE SCLEROSIS
     Route: 042
     Dates: start: 20100322

REACTIONS (9)
  - ARTHRALGIA [None]
  - BLOOD PRESSURE INCREASED [None]
  - CONCUSSION [None]
  - DERMATITIS CONTACT [None]
  - FALL [None]
  - HYPOAESTHESIA [None]
  - INFUSION SITE HAEMORRHAGE [None]
  - RIB FRACTURE [None]
  - SENSORY DISTURBANCE [None]
